FAERS Safety Report 5937924-X (Version None)
Quarter: 2008Q4

REPORT INFORMATION
  Report Type: 
  Country: None (occurrence: None)
  Receive Date: 20081031
  Receipt Date: 20081020
  Transmission Date: 20090506
  Serious: Yes (Other)
  Sender: FDA-Public Use
  Company Number: CA-PFIZER INC-2008074577

PATIENT
  Age: 47 Year
  Sex: Female

DRUGS (3)
  1. CHAMPIX [Suspect]
     Indication: SMOKING CESSATION THERAPY
     Route: 048
     Dates: start: 20080711, end: 20080830
  2. LIPITOR [Concomitant]
     Route: 048
     Dates: end: 20080830
  3. ASAPHEN [Concomitant]
     Route: 048
     Dates: end: 20080830

REACTIONS (13)
  - ANGER [None]
  - DEPRESSED MOOD [None]
  - DYSPHAGIA [None]
  - FATIGUE [None]
  - HYPERSENSITIVITY [None]
  - IRRITABILITY [None]
  - MENTAL DISORDER [None]
  - OROPHARYNGEAL PAIN [None]
  - PANIC REACTION [None]
  - RASH [None]
  - SOCIAL AVOIDANT BEHAVIOUR [None]
  - STRESS [None]
  - URTICARIA [None]
